FAERS Safety Report 14540502 (Version 1)
Quarter: 2018Q1

REPORT INFORMATION
  Report Type: Other
  Country: HU (occurrence: HU)
  Receive Date: 20180216
  Receipt Date: 20180216
  Transmission Date: 20180509
  Serious: Yes (Other)
  Sender: FDA-Public Use
  Company Number: HU-GLENMARK PHARMACEUTICALS-2018GMK032003

PATIENT

DRUGS (13)
  1. METRONIDAZOLE. [Suspect]
     Active Substance: METRONIDAZOLE
     Indication: OCULAR ROSACEA
     Dosage: UNK
     Route: 065
  2. ERYTHROMYCIN. [Suspect]
     Active Substance: ERYTHROMYCIN
     Indication: OCULAR ROSACEA
     Dosage: UNK
     Route: 065
  3. ZINC ACETATE [Suspect]
     Active Substance: ZINC ACETATE
     Indication: OCULAR ROSACEA
     Dosage: UNK
     Route: 065
  4. FUSIDIC ACID [Suspect]
     Active Substance: FUSIDIC ACID
     Indication: OCULAR ROSACEA
     Dosage: UNK
     Route: 065
  5. VITAMIN A PALMITATE [Suspect]
     Active Substance: VITAMIN A PALMITATE
     Indication: OCULAR ROSACEA
     Dosage: UNK
     Route: 065
  6. INDOMETACIN [Suspect]
     Active Substance: INDOMETHACIN
     Indication: OCULAR ROSACEA
     Dosage: UNK
     Route: 065
  7. DEXAMETHASONE. [Suspect]
     Active Substance: DEXAMETHASONE
     Indication: OCULAR ROSACEA
     Dosage: UNK
     Route: 065
  8. DOXYCYCLINE. [Suspect]
     Active Substance: DOXYCYCLINE
     Indication: OCULAR ROSACEA
     Dosage: UNK
     Route: 065
  9. TOBRAMYCIN. [Suspect]
     Active Substance: TOBRAMYCIN
     Indication: OCULAR ROSACEA
     Dosage: UNK
     Route: 065
  10. BETAMETHASONE DIPROPIONATE. [Suspect]
     Active Substance: BETAMETHASONE DIPROPIONATE
     Indication: OCULAR ROSACEA
     Dosage: UNK
     Route: 065
  11. FLUOROMETHOLONE. [Suspect]
     Active Substance: FLUOROMETHOLONE
     Indication: OCULAR ROSACEA
     Dosage: UNK
     Route: 065
  12. TETRACYCLINE [Suspect]
     Active Substance: TETRACYCLINE
     Indication: OCULAR ROSACEA
     Dosage: UNK
     Route: 065
  13. OXYTETRACYCLINE [Suspect]
     Active Substance: OXYTETRACYCLINE
     Indication: OCULAR ROSACEA
     Dosage: UNK
     Route: 065

REACTIONS (5)
  - Corneal perforation [Recovered/Resolved]
  - Maternal exposure during pregnancy [Unknown]
  - Corneal neovascularisation [Recovered/Resolved]
  - Product use in unapproved indication [Unknown]
  - Visual impairment [Recovered/Resolved]
